FAERS Safety Report 12677721 (Version 2)
Quarter: 2016Q3

REPORT INFORMATION
  Report Type: Report from Study
  Country: BR (occurrence: BR)
  Receive Date: 20160823
  Receipt Date: 20160902
  Transmission Date: 20161109
  Serious: Yes (Hospitalization, Other)
  Sender: FDA-Public Use
  Company Number: PHHY2016BR109550

PATIENT
  Sex: Female
  Weight: 63 kg

DRUGS (10)
  1. EXELON PATCH [Suspect]
     Active Substance: RIVASTIGMINE
     Indication: DEMENTIA ALZHEIMER^S TYPE
     Dosage: PATCH (5 CM2), QD
     Route: 062
     Dates: start: 201506
  2. LASIX [Concomitant]
     Active Substance: FUROSEMIDE
     Indication: MITRAL VALVE INCOMPETENCE
     Dosage: 40 MG, QD (STARTED USING 8 YEARS AGO)
     Route: 048
  3. ACETYLSALICYLIC ACID [Concomitant]
     Active Substance: ASPIRIN
     Indication: PROPHYLAXIS
     Dosage: 1 DF, QD (STARTED USING 8 YEARS AGO)
     Route: 048
  4. SPIRONOLACTONE. [Concomitant]
     Active Substance: SPIRONOLACTONE
     Indication: MITRAL VALVE INCOMPETENCE
     Dosage: 25 MG, QD (STARTED USING 8 YEARS AGO)
     Route: 048
  5. EXELON PATCH [Suspect]
     Active Substance: RIVASTIGMINE
     Dosage: PATCH 15 (CM2), QD
     Route: 062
     Dates: start: 201511, end: 201512
  6. OMEPRAZOLE. [Concomitant]
     Active Substance: OMEPRAZOLE
     Indication: PROPHYLAXIS
     Dosage: 20 MG, QD (STARTED USING 8 YEARS AGO)
     Route: 048
  7. NEBILET [Concomitant]
     Active Substance: NEBIVOLOL
     Indication: MITRAL VALVE INCOMPETENCE
     Dosage: 5 MG, BID (STARTED USING 8 YEARS AGO)
     Route: 048
  8. SIMVASTATIN. [Concomitant]
     Active Substance: SIMVASTATIN
     Indication: PROPHYLAXIS
     Dosage: 20 MG, QD (STARTED USING 8 YEARS AGO)
     Route: 048
  9. EXELON PATCH [Suspect]
     Active Substance: RIVASTIGMINE
     Dosage: PATCH (10 CM2), QD
     Route: 062
     Dates: start: 201509
  10. LOSARTAN. [Concomitant]
     Active Substance: LOSARTAN
     Indication: MITRAL VALVE INCOMPETENCE
     Dosage: 50 MG, QD (STARTED USING 10 YEARS)
     Route: 048

REACTIONS (12)
  - Disorientation [Recovered/Resolved]
  - Concomitant disease aggravated [Recovered/Resolved]
  - Dehydration [Recovered/Resolved]
  - Hypotonia [Recovered/Resolved]
  - Malaise [Unknown]
  - Diarrhoea [Recovered/Resolved]
  - Asthenia [Recovered/Resolved]
  - Muscle atrophy [Recovering/Resolving]
  - Syncope [Recovered/Resolved]
  - Weight decreased [Recovered/Resolved]
  - Drug intolerance [Unknown]
  - Memory impairment [Recovering/Resolving]

NARRATIVE: CASE EVENT DATE: 2015
